FAERS Safety Report 8031424 (Version 3)
Quarter: 2014Q3

REPORT INFORMATION
  Report Type: Report from Study
  Country: MX (occurrence: MX)
  Receive Date: 20110712
  Receipt Date: 20140918
  Transmission Date: 20150326
  Serious: No
  Sender: FDA-Public Use
  Company Number: PHHY2011MX59916

PATIENT
  Age: 58 Year
  Sex: Female

DRUGS (2)
  1. ACLASTA [Suspect]
     Active Substance: ZOLEDRONIC ACID
     Dosage: 5 MG/100 ML PER YEAR
     Route: 042
     Dates: start: 201207
  2. ACLASTA [Suspect]
     Active Substance: ZOLEDRONIC ACID
     Indication: OSTEOPOROSIS
     Dosage: 5 MG/100 ML PER YEAR
     Route: 042
     Dates: start: 20110702

REACTIONS (7)
  - Abasia [Unknown]
  - Musculoskeletal pain [Unknown]
  - Peripheral swelling [Unknown]
  - Blood pressure increased [Unknown]
  - Renal pain [Not Recovered/Not Resolved]
  - Headache [Unknown]
  - Pain in extremity [Unknown]

NARRATIVE: CASE EVENT DATE: 20110702
